FAERS Safety Report 23246822 (Version 3)
Quarter: 2024Q1

REPORT INFORMATION
  Report Type: Spontaneous
  Country: US (occurrence: US)
  Receive Date: 20231130
  Receipt Date: 20240216
  Transmission Date: 20240410
  Serious: No
  Sender: FDA-Public Use
  Company Number: US-LUNDBECK-DKLU3069578

PATIENT
  Age: 31 Year
  Sex: Female
  Weight: 89.9 kg

DRUGS (7)
  1. VYEPTI [Suspect]
     Active Substance: EPTINEZUMAB-JJMR
     Indication: Migraine
     Route: 041
     Dates: start: 20231013
  2. TOPAMAX [Concomitant]
     Active Substance: TOPIRAMATE
     Indication: Migraine prophylaxis
     Route: 065
  3. ELAVIL [Concomitant]
     Active Substance: AMITRIPTYLINE HYDROCHLORIDE
     Indication: Migraine prophylaxis
     Route: 065
  4. TORADOL [Concomitant]
     Active Substance: KETOROLAC TROMETHAMINE
     Indication: Symptomatic treatment
     Route: 065
  5. UBRELVY [Concomitant]
     Active Substance: UBROGEPANT
     Indication: Migraine
     Route: 065
  6. RIBOFLAVIN [Concomitant]
     Active Substance: RIBOFLAVIN
     Indication: Migraine
     Route: 065
  7. DIVALPROEX SODIUM [Concomitant]
     Active Substance: DIVALPROEX SODIUM
     Indication: Migraine
     Route: 065

REACTIONS (2)
  - Vision blurred [Not Recovered/Not Resolved]
  - Therapeutic product effect incomplete [Unknown]
